FAERS Safety Report 6184677-9 (Version None)
Quarter: 2009Q2

REPORT INFORMATION
  Report Type: 
  Country: None (occurrence: None)
  Receive Date: 20090508
  Receipt Date: 20090428
  Transmission Date: 20091009
  Serious: Yes (Other)
  Sender: FDA-Public Use
  Company Number: US-CELGENEUS-163-20785-09021511

PATIENT
  Sex: Male

DRUGS (4)
  1. REVLIMID [Suspect]
     Indication: MULTIPLE MYELOMA
     Route: 048
     Dates: start: 20090126
  2. REVLIMID [Suspect]
     Route: 048
     Dates: start: 20081201, end: 20090101
  3. NORVASC [Suspect]
     Indication: AORTIC STENOSIS
     Route: 065
     Dates: start: 20060601, end: 20090202
  4. NORVASC [Suspect]

REACTIONS (3)
  - ABASIA [None]
  - HYPOAESTHESIA [None]
  - OEDEMA PERIPHERAL [None]
